FAERS Safety Report 8766048 (Version 4)
Quarter: 2013Q1

REPORT INFORMATION
  Report Type: Spontaneous
  Country: US (occurrence: US)
  Receive Date: 20120904
  Receipt Date: 20130123
  Transmission Date: 20140127
  Serious: Yes (Hospitalization, Disabling, Other)
  Sender: FDA-Public Use
  Company Number: US-009507513-1205USA01674

PATIENT
  Sex: 0

DRUGS (7)
  1. FOSAMAX [Suspect]
     Indication: OSTEOPOROSIS
     Dosage: UNK UNK,
     Route: 048
     Dates: start: 2002
  2. FOSAMAX [Suspect]
     Dosage: 70MG, QW
     Route: 048
  3. FOSAMAX [Suspect]
     Indication: OSTEOPOROSIS
     Dosage: UNK, QW
     Route: 048
  4. FOSAMAX PLUS D [Suspect]
     Route: 048
  5. ALENDRONATE SODIUM [Suspect]
     Dosage: 70 MG, UNK
     Dates: start: 20090112
  6. VITAMINS (UNSPECIFIED) [Concomitant]
  7. ACTONEL [Suspect]
     Dosage: UNK
     Dates: start: 2002, end: 2012

REACTIONS (15)
  - Hip fracture [Not Recovered/Not Resolved]
  - Open reduction of fracture [Unknown]
  - Low turnover osteopathy [Not Recovered/Not Resolved]
  - Nasopharyngeal cancer [Unknown]
  - Skin graft [Unknown]
  - Knee operation [Unknown]
  - Varicose vein operation [Unknown]
  - Chronic obstructive pulmonary disease [Not Recovered/Not Resolved]
  - Intracranial aneurysm [Unknown]
  - Vitamin B12 deficiency [Unknown]
  - Hyperlipidaemia [Unknown]
  - Epistaxis [Unknown]
  - Bronchitis chronic [Not Recovered/Not Resolved]
  - Tooth loss [Unknown]
  - Bone disorder [Unknown]
